FAERS Safety Report 19308172 (Version 1)
Quarter: 2021Q2

REPORT INFORMATION
  Report Type: Spontaneous
  Country: US (occurrence: US)
  Receive Date: 20210526
  Receipt Date: 20210526
  Transmission Date: 20210717
  Serious: Yes (Other)
  Sender: FDA-Public Use
  Company Number: None

PATIENT
  Sex: Male

DRUGS (1)
  1. TROSPIUM [Suspect]
     Active Substance: TROSPIUM

REACTIONS (2)
  - Drug ineffective [None]
  - Cognitive disorder [None]
